FAERS Safety Report 18573523 (Version 1)
Quarter: 2020Q4

REPORT INFORMATION
  Report Type: Spontaneous
  Country: US (occurrence: US)
  Receive Date: 20201203
  Receipt Date: 20201203
  Transmission Date: 20210114
  Serious: Yes (Other)
  Sender: FDA-Public Use
  Company Number: US-SUN PHARMACEUTICAL INDUSTRIES LTD-2020R1-269409

PATIENT
  Age: 37 Year
  Sex: Female

DRUGS (1)
  1. TEMOZOLOMIDE. [Suspect]
     Active Substance: TEMOZOLOMIDE
     Indication: NEUROENDOCRINE CARCINOMA
     Dosage: UNK (DAYS 1-5 OF A 28-DAY CYCLE)
     Route: 065

REACTIONS (3)
  - Ovarian mass [Unknown]
  - Neoplasm progression [Not Recovered/Not Resolved]
  - Liver disorder [Not Recovered/Not Resolved]
